FAERS Safety Report 8545685 (Version 3)
Quarter: 2013Q4

REPORT INFORMATION
  Report Type: Spontaneous
  Country: JP (occurrence: JP)
  Receive Date: 20120503
  Receipt Date: 20131106
  Transmission Date: 20140711
  Serious: Yes (Hospitalization)
  Sender: FDA-Public Use
  Company Number: JP-009507513-1205USA00024

PATIENT
  Age: 74 Year
  Sex: Male

DRUGS (3)
  1. GLACTIV [Suspect]
     Indication: TYPE 2 DIABETES MELLITUS
     Dosage: 50 MG, QD
     Route: 048
     Dates: start: 20110310, end: 20110814
  2. MEVALOTIN [Concomitant]
     Dosage: UNK
     Dates: end: 20101125
  3. MEVALOTIN [Concomitant]
     Dosage: UNK
     Dates: start: 20110310, end: 20110813

REACTIONS (1)
  - Postoperative ileus [Recovered/Resolved]
